FAERS Safety Report 7450878-2 (Version None)
Quarter: 2011Q2

REPORT INFORMATION
  Report Type: 
  Country: None (occurrence: None)
  Receive Date: 20110502
  Receipt Date: 20110421
  Transmission Date: 20111010
  Serious: Yes (Disabling, Other)
  Sender: FDA-Public Use
  Company Number: US-PFIZER INC-2008067170

PATIENT
  Age: 60 Year
  Sex: Female

DRUGS (5)
  1. SERTRALINE [Suspect]
     Indication: DEPRESSION
  2. FLUOXETINE HYDROCHLORIDE [Suspect]
     Indication: DEPRESSION
  3. ESCITALOPRAM [Suspect]
     Indication: DEPRESSION
  4. VENLAFAXINE [Suspect]
     Indication: DEPRESSION
  5. PAROXETINE [Suspect]
     Indication: DEPRESSION

REACTIONS (4)
  - DISSOCIATION [None]
  - DEPRESSED MOOD [None]
  - DISTURBANCE IN SEXUAL AROUSAL [None]
  - EMOTIONAL DISORDER [None]
